FAERS Safety Report 6867525-0 (Version None)
Quarter: 2010Q3

REPORT INFORMATION
  Report Type: 
  Country: None (occurrence: None)
  Receive Date: 20100722
  Receipt Date: 20100712
  Transmission Date: 20110219
  Serious: Yes (Death)
  Sender: FDA-Public Use
  Company Number: IT-PFIZER INC-2010086560

PATIENT
  Age: 11 Year
  Sex: Female

DRUGS (9)
  1. LINEZOLID [Suspect]
  2. VANCOMYCIN [Suspect]
  3. CEFTAZIDIME [Concomitant]
  4. AMIKACIN [Concomitant]
  5. VORICONAZOLE [Concomitant]
  6. CASPOFUNGIN [Concomitant]
  7. LEVOFLOXACIN [Concomitant]
  8. MEROPENEM [Concomitant]
  9. PIPERACILLIN AND TAZOBACTAM [Concomitant]

REACTIONS (2)
  - ENTEROCOCCAL SEPSIS [None]
  - PATHOGEN RESISTANCE [None]
